FAERS Safety Report 6915952-5 (Version None)
Quarter: 2010Q3

REPORT INFORMATION
  Report Type: 
  Country: None (occurrence: None)
  Receive Date: 20100810
  Receipt Date: 20100728
  Transmission Date: 20110219
  Serious: Yes (Other)
  Sender: FDA-Public Use
  Company Number: US-BAYER-201029179NA

PATIENT
  Age: 55 Year
  Sex: Female

DRUGS (5)
  1. CAMPATH [Suspect]
     Indication: CHRONIC LYMPHOCYTIC LEUKAEMIA
     Dosage: AS USED: 3 MG
     Dates: start: 20100615
  2. CAMPATH [Suspect]
     Dosage: AS USED: 10 MG
     Dates: start: 20100616
  3. CAMPATH [Suspect]
     Dosage: TOTAL DAILY DOSE: 30 MG
     Dates: start: 20100618, end: 20100628
  4. CAMPATH [Suspect]
     Dosage: 3/10/30 MG
     Dates: start: 20100706, end: 20100719
  5. CAMPATH [Suspect]
     Dosage: AS USED: 3 MG
     Dates: start: 20100727

REACTIONS (2)
  - PLATELET COUNT DECREASED [None]
  - PYREXIA [None]
